FAERS Safety Report 7338150-2 (Version None)
Quarter: 2011Q1

REPORT INFORMATION
  Report Type: 
  Country: None (occurrence: None)
  Receive Date: 20110308
  Receipt Date: 20110223
  Transmission Date: 20110831
  Serious: Yes (Other)
  Sender: FDA-Public Use
  Company Number: FR-ELI_LILLY_AND_COMPANY-FR201103000598

PATIENT
  Sex: Male

DRUGS (6)
  1. VFEND [Concomitant]
     Dosage: UNK, UNKNOWN
     Route: 065
     Dates: start: 20101025
  2. LYRICA [Concomitant]
     Route: 048
     Dates: start: 20100906, end: 20100917
  3. CYMBALTA [Suspect]
     Indication: PAIN
     Dosage: UNK, UNKNOWN
     Route: 048
     Dates: start: 20100907, end: 20100911
  4. VFEND [Concomitant]
     Dates: start: 20100908, end: 20100913
  5. CONTRAMAL [Concomitant]
     Route: 048
     Dates: start: 20100904, end: 20100917
  6. GLUCOPHAGE [Concomitant]

REACTIONS (1)
  - BLOOD ALKALINE PHOSPHATASE INCREASED [None]
